FAERS Safety Report 7078265-X (Version None)
Quarter: 2010Q4

REPORT INFORMATION
  Report Type: 
  Country: None (occurrence: None)
  Receive Date: 20101101
  Receipt Date: 20101101
  Transmission Date: 20110411
  Serious: Yes (Hospitalization)
  Sender: FDA-Public Use
  Company Number: None

PATIENT
  Sex: Female

DRUGS (1)
  1. ENALAPRIL MALEATE [Suspect]
     Indication: HYPERTENSION
     Dosage: TAKE 1 TABLET TWICE A DAY
     Dates: start: 20101001, end: 20101007

REACTIONS (1)
  - BLOOD PRESSURE INCREASED [None]
